FAERS Safety Report 13353517 (Version 2)
Quarter: 2017Q2

REPORT INFORMATION
  Report Type: Spontaneous
  Country: US (occurrence: US)
  Receive Date: 20170321
  Receipt Date: 20170609
  Transmission Date: 20170830
  Serious: No
  Sender: FDA-Public Use
  Company Number: US-009507513-1703USA008340

PATIENT
  Age: 35 Year
  Sex: Female
  Weight: 125.62 kg

DRUGS (2)
  1. BELSOMRA [Suspect]
     Active Substance: SUVOREXANT
     Indication: INSOMNIA
     Dosage: 10 MG, QD
     Route: 048
     Dates: start: 20160815, end: 20160818
  2. PAXIL [Concomitant]
     Active Substance: PAROXETINE HYDROCHLORIDE
     Dosage: 40 MG, QD

REACTIONS (5)
  - Nervousness [Recovered/Resolved]
  - Tremor [Recovered/Resolved]
  - Blepharospasm [Recovered/Resolved]
  - Confusional state [Recovered/Resolved]
  - Insomnia [Recovered/Resolved]

NARRATIVE: CASE EVENT DATE: 20160815
